FAERS Safety Report 15822577 (Version 1)
Quarter: 2019Q1

REPORT INFORMATION
  Report Type: Spontaneous
  Country: JP (occurrence: JP)
  Receive Date: 20190114
  Receipt Date: 20190114
  Transmission Date: 20190417
  Serious: Yes (Other)
  Sender: FDA-Public Use
  Company Number: JP-PFIZER INC-2019012722

PATIENT
  Sex: Female
  Weight: 5.38 kg

DRUGS (10)
  1. HYDROCORTISONE. [Suspect]
     Active Substance: HYDROCORTISONE
     Indication: GENERALISED OEDEMA
     Dosage: 9 MG/KG, DAILY
  2. DEXAMETHASONE. [Suspect]
     Active Substance: DEXAMETHASONE
     Indication: BRONCHOPULMONARY DYSPLASIA
     Dosage: 0.3 MG/KG, DAILY (DIVIDED INTO 2 DOSES; THE DOSE WAS INCREASED BY 0.1 MG/KG EVERY THREE DAYS)
     Route: 042
  3. DOPAMINE [Concomitant]
     Active Substance: DOPAMINE\DOPAMINE HYDROCHLORIDE
     Indication: THERAPEUTIC PROCEDURE
     Dosage: UNK
     Route: 042
  4. DOBUTAMINE [Concomitant]
     Active Substance: DOBUTAMINE\DOBUTAMINE HYDROCHLORIDE
     Indication: THERAPEUTIC PROCEDURE
     Dosage: UNK
     Route: 042
  5. NITRIC OXIDE. [Concomitant]
     Active Substance: NITRIC OXIDE
     Indication: THERAPEUTIC PROCEDURE
     Dosage: UNK
     Route: 045
  6. ADRENALIN [EPINEPHRINE] [Concomitant]
     Dosage: UNK (0.6 GAMMA)
     Route: 042
  7. DOBUTAMINE [Concomitant]
     Active Substance: DOBUTAMINE\DOBUTAMINE HYDROCHLORIDE
     Dosage: UNK (15 GAMMA)
     Route: 042
  8. DOPAMINE [Concomitant]
     Active Substance: DOPAMINE\DOPAMINE HYDROCHLORIDE
     Dosage: UNK (15 GAMMA)
     Route: 042
  9. HYDROCORTISONE. [Suspect]
     Active Substance: HYDROCORTISONE
     Indication: HYPOTENSION
     Dosage: 4 MG/KG, DAILY
  10. ADRENALIN [EPINEPHRINE] [Concomitant]
     Indication: BLOOD PRESSURE INCREASED
     Dosage: UNK
     Route: 042

REACTIONS (2)
  - Necrotising retinitis [Unknown]
  - Cytomegalovirus chorioretinitis [Unknown]
